FAERS Safety Report 20170048 (Version 1)
Quarter: 2021Q4

REPORT INFORMATION
  Report Type: Spontaneous
  Country: KR (occurrence: KR)
  Receive Date: 20211210
  Receipt Date: 20211210
  Transmission Date: 20220303
  Serious: Yes (Other)
  Sender: FDA-Public Use
  Company Number: KR-PFIZER INC-202101664078

PATIENT
  Sex: Female

DRUGS (1)
  1. PROVERA [Suspect]
     Active Substance: MEDROXYPROGESTERONE ACETATE
     Indication: Amenorrhoea
     Dosage: 10 MG
     Dates: start: 20211122

REACTIONS (1)
  - Uterine dilation and curettage [Unknown]

NARRATIVE: CASE EVENT DATE: 20211125
